FAERS Safety Report 7461360-0 (Version None)
Quarter: 2011Q2

REPORT INFORMATION
  Report Type: 
  Country: None (occurrence: None)
  Receive Date: 20110506
  Receipt Date: 20110502
  Transmission Date: 20111010
  Serious: No
  Sender: FDA-Public Use
  Company Number: US-BIOGENIDEC-2011BI016118

PATIENT
  Age: 46 Year
  Sex: Female

DRUGS (3)
  1. BETASERON [Concomitant]
     Indication: MULTIPLE SCLEROSIS
  2. REBIF [Concomitant]
     Indication: MULTIPLE SCLEROSIS
  3. AVONEX [Suspect]
     Indication: MULTIPLE SCLEROSIS
     Route: 030
     Dates: start: 20110417

REACTIONS (3)
  - SEDATION [None]
  - PYREXIA [None]
  - TREMOR [None]
